FAERS Safety Report 7036967-5 (Version None)
Quarter: 2010Q4

REPORT INFORMATION
  Report Type: 
  Country: None (occurrence: None)
  Receive Date: 20101011
  Receipt Date: 20101006
  Transmission Date: 20110411
  Serious: Yes (Other)
  Sender: FDA-Public Use
  Company Number: JP-ASTRAZENECA-2010SE47250

PATIENT
  Age: 26 Year
  Sex: Male
  Weight: 72 kg

DRUGS (5)
  1. DIPRIVAN [Suspect]
     Indication: GENERAL ANAESTHESIA
     Route: 042
  2. ROCURONIUM BROMIDE [Concomitant]
     Route: 065
  3. REMIFENTANIL HYDROCHLORIDE [Concomitant]
     Route: 065
  4. FENTANYL CITRATE [Concomitant]
     Route: 065
  5. MORPHINE HYDROCHLORIDE [Concomitant]
     Route: 065

REACTIONS (1)
  - HYPERTHERMIA MALIGNANT [None]
